FAERS Safety Report 10170785 (Version 3)
Quarter: 2014Q2

REPORT INFORMATION
  Report Type: Spontaneous
  Country: IT (occurrence: IT)
  Receive Date: 20140514
  Receipt Date: 20140526
  Transmission Date: 20141212
  Serious: Yes (Hospitalization)
  Sender: FDA-Public Use
  Company Number: IT-ROCHE-1400936

PATIENT
  Age: 79 Year
  Sex: Female

DRUGS (2)
  1. LUCENTIS [Suspect]
     Indication: AGE-RELATED MACULAR DEGENERATION
     Route: 050
     Dates: start: 20130114
  2. LUCENTIS [Suspect]
     Dosage: SIXTH ADMINISTRATION
     Route: 050
     Dates: start: 20140127, end: 20140127

REACTIONS (2)
  - Ataxia [Recovered/Resolved with Sequelae]
  - Hypertension [Recovered/Resolved with Sequelae]
